FAERS Safety Report 9527733 (Version 1)
Quarter: 2013Q3

REPORT INFORMATION
  Report Type: Report from Study
  Country: AU (occurrence: AU)
  Receive Date: 20130917
  Receipt Date: 20130917
  Transmission Date: 20140515
  Serious: Yes (Hospitalization)
  Sender: FDA-Public Use
  Company Number: AU-ROCHE-1275537

PATIENT
  Age: 77 Year
  Sex: Female

DRUGS (4)
  1. BEVACIZUMAB [Suspect]
     Indication: PRODUCT USED FOR UNKNOWN INDICATION
     Route: 065
  2. 5-FLUOROURACIL [Concomitant]
  3. LEUCOVORIN [Concomitant]
  4. OXALIPLATIN [Concomitant]

REACTIONS (1)
  - Cardiac disorder [Unknown]
